FAERS Safety Report 7517866-9 (Version None)
Quarter: 2011Q2

REPORT INFORMATION
  Report Type: 
  Country: None (occurrence: None)
  Receive Date: 20110526
  Receipt Date: 20110526
  Transmission Date: 20111010
  Serious: Yes (Life-Threatening, Disabling, Other)
  Sender: FDA-Public Use
  Company Number: None

PATIENT
  Age: 74 Year
  Sex: Female
  Weight: 93.441 kg

DRUGS (2)
  1. SINEMET CR [Suspect]
     Indication: PARKINSON'S DISEASE
     Dosage: 2 PILLS AM + PM  2 - 2 X DAY AM PM ORAL
     Route: 048
     Dates: start: 20110325
  2. SINEMET CR [Suspect]
     Indication: PARKINSON'S DISEASE
     Dosage: 2 PILLS AM + PM  2 - 2 X DAY AM PM ORAL
     Route: 048
     Dates: start: 20110428

REACTIONS (2)
  - PRODUCT SUBSTITUTION ISSUE [None]
  - MALAISE [None]
